FAERS Safety Report 6573419-0 (Version None)
Quarter: 2010Q1

REPORT INFORMATION
  Report Type: 
  Country: None (occurrence: None)
  Receive Date: 20100204
  Receipt Date: 20100204
  Transmission Date: 20100710
  Serious: Yes (Other)
  Sender: FDA-Public Use
  Company Number: None

PATIENT
  Age: 12 Month
  Sex: Female
  Weight: 8.6183 kg

DRUGS (2)
  1. XYZAL [Suspect]
     Indication: DERMATITIS CONTACT
     Dosage: 2.5 MLS ONCE DAILY ORAL
     Route: 048
     Dates: start: 20090901, end: 20091101
  2. PRAMAZONE [Concomitant]

REACTIONS (6)
  - ABDOMINAL DISCOMFORT [None]
  - BLISTER [None]
  - CHEMICAL BURN OF SKIN [None]
  - DERMATITIS DIAPER [None]
  - PAIN [None]
  - ULCER HAEMORRHAGE [None]
